FAERS Safety Report 5486217-6 (Version None)
Quarter: 2007Q4

REPORT INFORMATION
  Report Type: 
  Country: None (occurrence: None)
  Receive Date: 20071012
  Receipt Date: 20070907
  Transmission Date: 20080405
  Serious: Yes (Other)
  Sender: FDA-Public Use
  Company Number: STI-2007-01530

PATIENT
  Age: 59 Year
  Sex: Female

DRUGS (7)
  1. CLOBETASOL (UNSPECIFIED) (CLOBETASOL PROPIONATE) (CLOHETASOLE PROPIONA [Suspect]
     Indication: PRURITUS
     Dosage: INGUINAL, ANAL, FACE
  2. CLOBETASOL (UNSPECIFIED) (CLOBETASOL PROPIONATE) (CLOHETASOLE PROPIONA [Suspect]
     Indication: SKIN IRRITATION
     Dosage: INGUINAL, ANAL, FACE
  3. MEDIUM STRENGTH CORTICOSTEROIDS (CORTICOSTEROIDS) [Suspect]
  4. TRIAMCINOLONE [Suspect]
     Dosage: INTRAMUSCULAR
     Route: 030
  5. CETIRIZINE HCL [Suspect]
     Indication: PRURITUS
  6. ESTROGEN AND PROGESTERONE HORMONE REPLACEMENT THERAPY (ANOLVAR) [Suspect]
  7. TRIAMCINOLONE [Concomitant]

REACTIONS (7)
  - CONDITION AGGRAVATED [None]
  - DERMATITIS [None]
  - DRUG DEPENDENCE [None]
  - DRUG WITHDRAWAL SYNDROME [None]
  - INCORRECT DOSE ADMINISTERED [None]
  - SKIN BURNING SENSATION [None]
  - VULVOVAGINAL DISCOMFORT [None]
